FAERS Safety Report 8406689-4 (Version None)
Quarter: 2012Q2

REPORT INFORMATION
  Report Type: 
  Country: None (occurrence: None)
  Receive Date: 20120604
  Receipt Date: 20120524
  Transmission Date: 20120825
  Serious: Yes (Death, Hospitalization, Other)
  Sender: FDA-Public Use
  Company Number: US-BRISTOL-MYERS SQUIBB COMPANY-15780935

PATIENT
  Age: 72 Year
  Sex: Male
  Weight: 109 kg

DRUGS (26)
  1. ZANTAC [Concomitant]
  2. DULCOLAX [Concomitant]
  3. ASPIRIN [Concomitant]
  4. ACETAMINOPHEN [Concomitant]
  5. LOVENOX [Concomitant]
  6. IPILIMUMAB [Suspect]
     Indication: MALIGNANT MELANOMA
     Dosage: LAST DOSE:18APR11 09MAY11,COURSES: 2 10MG/KGIV(INDUC THER) 10MG/KGIV(MAIN THER) CY:21D 1170MG
     Route: 042
     Dates: start: 20110418
  7. MEGACE [Concomitant]
  8. MULTI-VITAMINS [Concomitant]
  9. COMPAZINE [Concomitant]
  10. ZOFRAN [Concomitant]
  11. FLOMAX [Concomitant]
  12. TOPROL-XL [Concomitant]
  13. MAGNESIUM HYDROXIDE TAB [Concomitant]
  14. GLUCOSAMINE [Concomitant]
  15. POTASSIUM CHLORIDE [Concomitant]
  16. ZOCOR [Concomitant]
  17. NAPROSYN [Concomitant]
  18. DECADRON [Concomitant]
  19. CALCIUM CARBONATE [Concomitant]
  20. LASIX [Concomitant]
  21. SEROQUEL [Concomitant]
  22. NEXIUM [Concomitant]
  23. CELEXA [Concomitant]
  24. DIFLUCAN [Concomitant]
  25. FAMOTIDINE [Concomitant]
  26. OCEAN [Concomitant]

REACTIONS (11)
  - SEPSIS [None]
  - COLITIS [None]
  - LARGE INTESTINE PERFORATION [None]
  - HYPOALBUMINAEMIA [None]
  - DYSPHAGIA [None]
  - DEHYDRATION [None]
  - FATIGUE [None]
  - GAIT DISTURBANCE [None]
  - LYMPHOCYTE COUNT DECREASED [None]
  - MUSCULAR WEAKNESS [None]
  - DECREASED APPETITE [None]
